FAERS Safety Report 8372292-8 (Version None)
Quarter: 2012Q2

REPORT INFORMATION
  Report Type: 
  Country: None (occurrence: None)
  Receive Date: 20120521
  Receipt Date: 20120514
  Transmission Date: 20120825
  Serious: Yes (Hospitalization)
  Sender: FDA-Public Use
  Company Number: DE-BRISTOL-MYERS SQUIBB COMPANY-16369076

PATIENT
  Age: 61 Year
  Sex: Male
  Weight: 70 kg

DRUGS (3)
  1. GEMCITABINE [Suspect]
     Indication: NON-SMALL CELL LUNG CANCER
     Dosage: DAY1,DAY8 OF EACH 3WEEK CYCLE;11JAN12;INF:3,RE-INTRO TREAT SCHED-1FEB12,INTER 25JAN12,RESTART 8FEB12
     Route: 042
     Dates: start: 20111214
  2. CETUXIMAB [Suspect]
     Indication: NON-SMALL CELL LUNG CANCER
     Dosage: RECENT INF ON 11JAN12; INTER ON 18JAN12,RE-INTROD OF STUDY TREATMENT SCHEDULED 01-FEB-2012. 3INF
     Route: 042
     Dates: start: 20111214
  3. CISPLATIN [Suspect]
     Indication: NON-SMALL CELL LUNG CANCER
     Dosage: INF ON 04JAN12;INF:2, RE-INTR OF STUDY TREAT SCHEDULED 01FEB2012,INTER ON 25JAN12,RESTART 08FEB12
     Route: 042
     Dates: start: 20111214

REACTIONS (1)
  - PROCTITIS [None]
